FAERS Safety Report 4748489-2 (Version None)
Quarter: 2005Q3

REPORT INFORMATION
  Report Type: 
  Country: None (occurrence: None)
  Receive Date: 20050818
  Receipt Date: 20050818
  Transmission Date: 20060218
  Serious: Yes (Other)
  Sender: FDA-Public Use
  Company Number: None

PATIENT
  Sex: Female
  Weight: 96.1626 kg

DRUGS (1)
  1. TRICOR [Suspect]
     Indication: HYPERLIPIDAEMIA
     Dosage: 145MG PO DAILY
     Route: 048
     Dates: start: 20050307, end: 20050408

REACTIONS (1)
  - HIGH DENSITY LIPOPROTEIN DECREASED [None]
